FAERS Safety Report 7068033-7 (Version None)
Quarter: 2010Q4

REPORT INFORMATION
  Report Type: 
  Country: None (occurrence: None)
  Receive Date: 20101020
  Receipt Date: 20101006
  Transmission Date: 20110411
  Serious: Yes (Hospitalization)
  Sender: FDA-Public Use
  Company Number: 2010MA003378

PATIENT
  Age: 15 Year
  Sex: Male

DRUGS (2)
  1. IBUPROFEN [Suspect]
     Indication: CONTUSION
     Dosage: 600 MG; 1X
  2. IBUPROFEN [Suspect]
     Indication: JOINT SPRAIN
     Dosage: 600 MG; 1X

REACTIONS (4)
  - ANGIOEDEMA [None]
  - CONFUSIONAL STATE [None]
  - MENINGITIS ASEPTIC [None]
  - PYREXIA [None]
